FAERS Safety Report 16171422 (Version 1)
Quarter: 2019Q2

REPORT INFORMATION
  Report Type: Spontaneous
  Country: CA (occurrence: CA)
  Receive Date: 20190408
  Receipt Date: 20190408
  Transmission Date: 20190711
  Serious: Yes (Hospitalization)
  Sender: FDA-Public Use
  Company Number: CA-GREER LABORATORIES, INC.-2065493

PATIENT
  Age: 26 Year
  Sex: Female

DRUGS (23)
  1. DOG EPITHELIA [Suspect]
     Active Substance: CANIS LUPUS FAMILIARIS SKIN
     Route: 058
  2. STANDARDIZED TIMOTHY GRASS [Suspect]
     Active Substance: PHLEUM PRATENSE POLLEN
     Route: 058
  3. TRICHOPHYTON MENTAGROPHYTES. [Suspect]
     Active Substance: TRICHOPHYTON MENTAGROPHYTES
     Route: 058
  4. ALDER, HAZEL, ALNUS SERRULATA [Suspect]
     Active Substance: ALNUS SERRULATA POLLEN
     Route: 058
  5. BIRCH, WHITE, BETULA POPULIFOLIA [Suspect]
     Active Substance: BETULA POPULIFOLIA POLLEN
     Route: 058
  6. ASPERGILLUS FUMIGATUS. [Suspect]
     Active Substance: ASPERGILLUS FUMIGATUS
     Route: 058
  7. BIPOLARIS SOROKINIANA [Suspect]
     Active Substance: COCHLIOBOLUS SATIVUS
     Route: 058
  8. TRICHOPHYTON MENTAGROPHYTES. [Suspect]
     Active Substance: TRICHOPHYTON MENTAGROPHYTES
     Route: 058
  9. PENICILLIUM NOTATUM [Suspect]
     Active Substance: PENICILLIUM CHRYSOGENUM VAR. CHRYSOGENUM
     Route: 058
  10. STERILE DILUENT FOR ALLERGENIC EXTRACTS, NORMAL SALINE [Suspect]
     Active Substance: SODIUM CHLORIDE
     Route: 058
  11. STERILE DILUENT FOR ALLERGENIC EXTRACTS, NORMAL SALINE [Suspect]
     Active Substance: SODIUM CHLORIDE
     Route: 058
  12. CLADOSPORIUM [Suspect]
     Active Substance: CLADOSPORIUM HERBARUM
     Route: 058
  13. STANDARDIZED MITE MIX [Suspect]
     Active Substance: DERMATOPHAGOIDES FARINAE\DERMATOPHAGOIDES PTERONYSSINUS
     Indication: RHINITIS ALLERGIC
     Route: 058
  14. HORSE EPITHELIA [Suspect]
     Active Substance: EQUUS CABALLUS SKIN
     Route: 058
  15. HORSE EPITHELIA [Suspect]
     Active Substance: EQUUS CABALLUS SKIN
     Route: 058
  16. HORSE EPITHELIA [Suspect]
     Active Substance: EQUUS CABALLUS SKIN
     Route: 058
  17. ENGLISH PLANTAIN [Suspect]
     Active Substance: PLANTAGO LANCEOLATA POLLEN
     Route: 058
  18. STANDARDIZED ORCHARD GRASS [Suspect]
     Active Substance: DACTYLIS GLOMERATA POLLEN
     Route: 058
  19. HORSE EPITHELIA [Suspect]
     Active Substance: EQUUS CABALLUS SKIN
     Route: 058
  20. STANDARDIZED CAT HAIR [Suspect]
     Active Substance: FELIS CATUS HAIR
     Route: 058
  21. STANDARDIZED PERENNIAL RYE GRASS [Suspect]
     Active Substance: LOLIUM PERENNE POLLEN
     Route: 058
  22. STERILE DILUENT FOR ALLERGENIC EXTRACTS, NORMAL SALINE [Suspect]
     Active Substance: SODIUM CHLORIDE
     Route: 058
  23. CANDIDA ALBICANS. [Suspect]
     Active Substance: CANDIDA ALBICANS
     Route: 058

REACTIONS (3)
  - Chest discomfort [Recovered/Resolved]
  - Dyspnoea [Recovered/Resolved]
  - Rash pruritic [Recovered/Resolved]

NARRATIVE: CASE EVENT DATE: 20180320
